FAERS Safety Report 7042909-9 (Version None)
Quarter: 2010Q4

REPORT INFORMATION
  Report Type: 
  Country: None (occurrence: None)
  Receive Date: 20101013
  Receipt Date: 20100106
  Transmission Date: 20110411
  Serious: No
  Sender: FDA-Public Use
  Company Number: US-ASTRAZENECA-2010SE00478

PATIENT
  Age: 68 Year
  Sex: Male
  Weight: 99.8 kg

DRUGS (9)
  1. SYMBICORT [Suspect]
     Indication: ASTHMA
     Dosage: 320 MCG
     Route: 055
     Dates: start: 20081201, end: 20090401
  2. SYMBICORT [Suspect]
     Indication: CHRONIC OBSTRUCTIVE PULMONARY DISEASE
     Dosage: 320 MCG
     Route: 055
     Dates: start: 20081201, end: 20090401
  3. SYMBICORT [Suspect]
     Dosage: 640 MCG
     Route: 055
     Dates: start: 20090401
  4. SYMBICORT [Suspect]
     Dosage: 640 MCG
     Route: 055
     Dates: start: 20090401
  5. PROAIR HFA [Concomitant]
     Dosage: PRN
  6. OXYGEN [Concomitant]
  7. SPIRIVA [Concomitant]
  8. BLOOD PRESSURE MEDICATION [Concomitant]
  9. CHOLESTEROL MEDICATION [Concomitant]

REACTIONS (5)
  - BRONCHITIS [None]
  - LARYNGITIS [None]
  - OEDEMA PERIPHERAL [None]
  - SWELLING FACE [None]
  - SWOLLEN TONGUE [None]
